FAERS Safety Report 11841357 (Version 1)
Quarter: 2015Q4

REPORT INFORMATION
  Report Type: Spontaneous
  Country: JP (occurrence: JP)
  Receive Date: 20151216
  Receipt Date: 20151216
  Transmission Date: 20160305
  Serious: Yes (Death)
  Sender: FDA-Public Use
  Company Number: JP-MALLINCKRODT-T201505686

PATIENT
  Age: 73 Year
  Sex: Female
  Weight: 42 kg

DRUGS (9)
  1. CALONAL [Concomitant]
     Active Substance: ACETAMINOPHEN
     Indication: ANALGESIC THERAPY
     Dosage: 2400 MG
     Route: 048
     Dates: start: 20131210
  2. NEXIUM [Concomitant]
     Active Substance: ESOMEPRAZOLE MAGNESIUM
     Dosage: 10 MG
     Route: 048
     Dates: start: 20140225
  3. DUROTEP [Concomitant]
     Active Substance: FENTANYL
     Dosage: 10.5 MG
     Route: 062
     Dates: start: 20140320, end: 20140409
  4. OXINORM [Concomitant]
     Active Substance: OXYCODONE HYDROCHLORIDE
     Indication: ANALGESIC THERAPY
     Dosage: 10 MG, PRN
     Route: 048
     Dates: start: 20140324
  5. LYRICA [Concomitant]
     Active Substance: PREGABALIN
     Dosage: 225 MG
     Route: 048
     Dates: start: 20140401
  6. E FEN [Concomitant]
     Indication: ANALGESIC THERAPY
     Dosage: 200 - 400 MCG, PRN
     Route: 002
     Dates: start: 20140324
  7. METHADONE [Suspect]
     Active Substance: METHADONE HYDROCHLORIDE
     Indication: CANCER PAIN
     Dosage: 5 MG (15 MG DAILY DOSE)
     Route: 048
     Dates: start: 20140326, end: 20140409
  8. ALLEGRA [Concomitant]
     Active Substance: FEXOFENADINE HYDROCHLORIDE
     Dosage: 120 MG
     Route: 048
     Dates: start: 20131127
  9. LYRICA [Concomitant]
     Active Substance: PREGABALIN
     Indication: ANALGESIC THERAPY
     Dosage: 300 MG
     Route: 048
     Dates: start: 20140131, end: 20140331

REACTIONS (1)
  - Rectal cancer [Fatal]
